FAERS Safety Report 6439980-1 (Version None)
Quarter: 2009Q4

REPORT INFORMATION
  Report Type: 
  Country: None (occurrence: None)
  Receive Date: 20091113
  Receipt Date: 20091106
  Transmission Date: 20100525
  Serious: Yes (Other)
  Sender: FDA-Public Use
  Company Number: GB-RB-024378-09

PATIENT
  Sex: Female

DRUGS (1)
  1. SUBOXONE [Suspect]
     Dosage: DOSING DETAILS UNKNOWN
     Route: 065

REACTIONS (3)
  - OEDEMA PERIPHERAL [None]
  - PAIN IN EXTREMITY [None]
  - SWELLING [None]
